FAERS Safety Report 24174852 (Version 1)
Quarter: 2024Q3

REPORT INFORMATION
  Report Type: Spontaneous
  Country: US (occurrence: US)
  Receive Date: 20240805
  Receipt Date: 20240805
  Transmission Date: 20241017
  Serious: No
  Sender: KYOWA
  Company Number: US-KYOWAKIRIN-2024KK018603

PATIENT

DRUGS (1)
  1. NOURIANZ [Suspect]
     Active Substance: ISTRADEFYLLINE
     Indication: Illness
     Dosage: 20 MG, QD
     Route: 048

REACTIONS (1)
  - Drug ineffective [Unknown]
